FAERS Safety Report 7414258-8 (Version None)
Quarter: 2011Q2

REPORT INFORMATION
  Report Type: 
  Country: None (occurrence: None)
  Receive Date: 20110411
  Receipt Date: 20110411
  Transmission Date: 20111010
  Serious: No
  Sender: FDA-Public Use
  Company Number: None

PATIENT
  Age: 71 Year
  Sex: Female

DRUGS (3)
  1. CARVEDILOL [Suspect]
     Dates: start: 20090925, end: 20091029
  2. TERBINAFINE [Suspect]
     Dates: start: 20090717, end: 20090925
  3. SIMVASTATIN [Suspect]
     Dates: start: 20090819, end: 20091116

REACTIONS (4)
  - ALANINE AMINOTRANSFERASE INCREASED [None]
  - LIVER FUNCTION TEST ABNORMAL [None]
  - LIVER DISORDER [None]
  - ASPARTATE AMINOTRANSFERASE INCREASED [None]
